FAERS Safety Report 9382815 (Version 1)
Quarter: 2013Q3

REPORT INFORMATION
  Report Type: Spontaneous
  Country: JP (occurrence: JP)
  Receive Date: 20130703
  Receipt Date: 20130703
  Transmission Date: 20140515
  Serious: Yes (Life-Threatening)
  Sender: FDA-Public Use
  Company Number: JP-B.I. PHARMACEUTICALS,INC./RIDGEFIELD-2013-BI-18667NB

PATIENT
  Age: 75 Year
  Sex: Female

DRUGS (5)
  1. MICARDIS [Suspect]
     Indication: HYPERTENSION
     Dosage: 40 MG
     Route: 048
     Dates: start: 201204, end: 20120821
  2. MYONAL [Suspect]
     Indication: BACK PAIN
     Route: 048
     Dates: start: 201204, end: 20120821
  3. DEPAS [Suspect]
     Indication: ANXIETY DISORDER
     Dosage: 3 MG
     Route: 048
     Dates: start: 201204, end: 20120821
  4. LECTISOL [Suspect]
     Indication: PEMPHIGOID
     Dosage: 75 MG
     Route: 048
     Dates: start: 20120627, end: 20120719
  5. PREDONINE [Concomitant]
     Indication: PEMPHIGOID
     Dosage: 50 MG
     Route: 048
     Dates: start: 20120719

REACTIONS (1)
  - Toxic epidermal necrolysis [Recovered/Resolved]
